FAERS Safety Report 4679189-5 (Version None)
Quarter: 2005Q2

REPORT INFORMATION
  Report Type: 
  Country: None (occurrence: None)
  Receive Date: 20050526
  Receipt Date: 20050202
  Transmission Date: 20051028
  Serious: Yes (Hospitalization)
  Sender: FDA-Public Use
  Company Number: WAES 0502USA00316

PATIENT
  Age: 74 Year
  Sex: Female

DRUGS (1)
  1. VYTORIN [Suspect]
     Dosage: UNK/UNK/PO
     Route: 048

REACTIONS (1)
  - PAIN IN EXTREMITY [None]
